FAERS Safety Report 5706439-6 (Version None)
Quarter: 2008Q2

REPORT INFORMATION
  Report Type: 
  Country: None (occurrence: None)
  Receive Date: 20080414
  Receipt Date: 20080331
  Transmission Date: 20081010
  Serious: Yes (Life-Threatening, Other)
  Sender: FDA-Public Use
  Company Number: US022609

PATIENT
  Age: 86 Year
  Sex: Female

DRUGS (16)
  1. PROVIGIL [Suspect]
     Dosage: 200 MG QD ORAL
     Route: 048
     Dates: start: 20070816, end: 20071128
  2. TYLENOL [Concomitant]
  3. LYRICA [Concomitant]
  4. ZOLPIDEM TARTRATE [Concomitant]
  5. TRIAMTERENE AND HYDROCHLOROTHIAZIDE [Concomitant]
  6. SIMVASTATIN [Concomitant]
  7. PLAVIX [Concomitant]
  8. MEGESTROL ACETATE [Concomitant]
  9. INSULIN NOVOLIN [Concomitant]
  10. FLUOXETINE [Concomitant]
  11. ENALAPRIL MALEATE [Concomitant]
  12. DILTIAZEM [Concomitant]
  13. POVIDONE IODINE [Concomitant]
  14. HYDROCODONE BITARTRATE [Concomitant]
  15. DOCUSATE SODIUM [Concomitant]
  16. NEXIUM [Concomitant]

REACTIONS (2)
  - HYPERGLYCAEMIA [None]
  - HYPOGLYCAEMIA [None]
